FAERS Safety Report 14895645 (Version 1)
Quarter: 2018Q2

REPORT INFORMATION
  Report Type: Spontaneous
  Country: US (occurrence: US)
  Receive Date: 20180427
  Receipt Date: 20180427
  Transmission Date: 20180711
  Serious: Yes (Life-Threatening, Hospitalization, Disabling)
  Sender: FDA-Public Use
  Company Number: None

PATIENT
  Age: 41 Year
  Sex: Female

DRUGS (5)
  1. METHIMAZOLE. [Concomitant]
     Active Substance: METHIMAZOLE
  2. LISINOPRIL/HCTZ [Concomitant]
     Active Substance: HYDROCHLOROTHIAZIDE\LISINOPRIL
  3. BABY ASPIRIN [Concomitant]
     Active Substance: ASPIRIN
  4. TAYTULLA [Suspect]
     Active Substance: ETHINYL ESTRADIOL\NORETHINDRONE ACETATE
     Indication: MUSCLE SPASMS
     Dosage: ?          QUANTITY:24 CAPSULE(S);?
     Route: 048
     Dates: start: 20170514, end: 20170713
  5. WARFARIN [Concomitant]
     Active Substance: WARFARIN

REACTIONS (2)
  - Cerebral venous thrombosis [None]
  - Influenza [None]

NARRATIVE: CASE EVENT DATE: 20170718
